FAERS Safety Report 12707008 (Version 6)
Quarter: 2016Q4

REPORT INFORMATION
  Report Type: Spontaneous
  Country: US (occurrence: US)
  Receive Date: 20160901
  Receipt Date: 20161120
  Transmission Date: 20170207
  Serious: Yes (Life-Threatening, Hospitalization)
  Sender: FDA-Public Use
  Company Number: PHEH2016US021705

PATIENT
  Age: 60 Year
  Sex: Female

DRUGS (16)
  1. METHYLPREDNISOLONE. [Concomitant]
     Active Substance: METHYLPREDNISOLONE
     Indication: PRODUCT USED FOR UNKNOWN INDICATION
     Dosage: 6 DF, QD (PILLS)
     Route: 065
     Dates: start: 20160204
  2. RECLAST [Suspect]
     Active Substance: ZOLEDRONIC ACID
     Indication: OSTEOPOROSIS
     Dosage: UNK
     Route: 041
     Dates: start: 201601
  3. AMITRIPTYLINE [Concomitant]
     Active Substance: AMITRIPTYLINE
     Indication: PRODUCT USED FOR UNKNOWN INDICATION
     Route: 065
  4. MIRALAX [Concomitant]
     Active Substance: POLYETHYLENE GLYCOL 3350
     Indication: PRODUCT USED FOR UNKNOWN INDICATION
     Route: 065
  5. METHYLPREDNISOLONE. [Concomitant]
     Active Substance: METHYLPREDNISOLONE
     Dosage: UNK
     Route: 065
     Dates: start: 20160308
  6. PREVACID [Concomitant]
     Active Substance: LANSOPRAZOLE
     Indication: PRODUCT USED FOR UNKNOWN INDICATION
     Route: 065
  7. METHYLPREDNISOLONE. [Concomitant]
     Active Substance: METHYLPREDNISOLONE
     Dosage: 2 DF, QD
     Route: 065
  8. CLONAZEPAM. [Concomitant]
     Active Substance: CLONAZEPAM
     Dosage: 1 DF, QD
     Route: 065
  9. METHYLPREDNISOLONE. [Concomitant]
     Active Substance: METHYLPREDNISOLONE
     Dosage: 5 DF, QD (PILLS)
     Route: 065
  10. CLONAZEPAM. [Concomitant]
     Active Substance: CLONAZEPAM
     Indication: ANXIETY
     Dosage: 1 DF, BID
     Route: 048
     Dates: start: 20160402
  11. BENZODIAZEPINE DERIVATIVES [Concomitant]
     Active Substance: BENZODIAZEPINE
     Indication: PRODUCT USED FOR UNKNOWN INDICATION
     Route: 065
  12. EFFEXOR [Concomitant]
     Active Substance: VENLAFAXINE HYDROCHLORIDE
     Indication: PRODUCT USED FOR UNKNOWN INDICATION
     Route: 065
  13. METHYLPREDNISOLONE. [Concomitant]
     Active Substance: METHYLPREDNISOLONE
     Dosage: 1 DF, QD
     Route: 065
     Dates: end: 20160308
  14. PERCOCET [Concomitant]
     Active Substance: ACETAMINOPHEN\OXYCODONE HYDROCHLORIDE
     Indication: PRODUCT USED FOR UNKNOWN INDICATION
     Dosage: UNK
     Route: 065
  15. METHYLPREDNISOLONE. [Concomitant]
     Active Substance: METHYLPREDNISOLONE
     Dosage: 4 DF, QD (PILLS)
     Route: 065
  16. METHYLPREDNISOLONE. [Concomitant]
     Active Substance: METHYLPREDNISOLONE
     Dosage: 3 DF, QD
     Route: 065

REACTIONS (39)
  - Weight decreased [Unknown]
  - Flight of ideas [Unknown]
  - Wheezing [Recovered/Resolved]
  - Affect lability [Unknown]
  - Pain [Unknown]
  - Pruritus [Unknown]
  - Blood pressure decreased [Unknown]
  - Coeliac disease [Unknown]
  - Abdominal pain [Unknown]
  - Gastrointestinal hypomotility [Unknown]
  - Tooth loss [Unknown]
  - Dysphagia [Unknown]
  - General physical health deterioration [Unknown]
  - Drug withdrawal syndrome [Unknown]
  - Gastrointestinal disorder [Unknown]
  - Aphonia [Unknown]
  - Depression [Unknown]
  - Dysphonia [Unknown]
  - Mastication disorder [Unknown]
  - Tremor [Unknown]
  - Pyrexia [Unknown]
  - Muscle spasms [Unknown]
  - Fatigue [Unknown]
  - Tooth demineralisation [Unknown]
  - Osteoarthritis [Unknown]
  - Chills [Unknown]
  - Quality of life decreased [Unknown]
  - Arthralgia [Unknown]
  - Myalgia [Unknown]
  - Abdominal distension [Unknown]
  - Alopecia [Unknown]
  - Dysuria [Unknown]
  - Psychomotor hyperactivity [Unknown]
  - Ventricular extrasystoles [Unknown]
  - Anxiety [Unknown]
  - Palpitations [Unknown]
  - Supraventricular extrasystoles [Unknown]
  - Tendonitis [Unknown]
  - Chest pain [Unknown]

NARRATIVE: CASE EVENT DATE: 20160121
